FAERS Safety Report 6290250-4 (Version None)
Quarter: 2009Q3

REPORT INFORMATION
  Report Type: 
  Country: None (occurrence: None)
  Receive Date: 20090730
  Receipt Date: 20090123
  Transmission Date: 20100115
  Serious: No
  Sender: FDA-Public Use
  Company Number: US-BRISTOL-MYERS SQUIBB COMPANY-14488100

PATIENT
  Sex: Male

DRUGS (3)
  1. COUMADIN [Suspect]
  2. WARFARIN SODIUM [Suspect]
  3. COENZYME Q10 [Suspect]

REACTIONS (2)
  - EPISTAXIS [None]
  - HAEMATOCHEZIA [None]
